FAERS Safety Report 8455694-0 (Version None)
Quarter: 2012Q2

REPORT INFORMATION
  Report Type: 
  Country: None (occurrence: None)
  Receive Date: 20120621
  Receipt Date: 20120612
  Transmission Date: 20120825
  Serious: Yes (Other)
  Sender: FDA-Public Use
  Company Number: SE-JNJFOC-20120608386

PATIENT

DRUGS (4)
  1. VINCRISTINE [Suspect]
     Indication: B-CELL TYPE ACUTE LEUKAEMIA
     Dosage: (MAXIMUM DOSE 2.5 MG) DAY 1, 8, 15, AND 22
     Route: 042
  2. PREDNISOLONE [Suspect]
     Indication: B-CELL TYPE ACUTE LEUKAEMIA
     Route: 048
  3. DOXORUBICIN HCL [Suspect]
     Indication: B-CELL TYPE ACUTE LEUKAEMIA
     Dosage: DAY 1 AND 22
     Route: 042
  4. METHOTREXATE [Suspect]
     Indication: B-CELL TYPE ACUTE LEUKAEMIA
     Dosage: 8-12 MG (AGE DEPENDENT) DAY 1, 8, AND 15
     Route: 037

REACTIONS (2)
  - OFF LABEL USE [None]
  - NEOPLASM MALIGNANT [None]
